FAERS Safety Report 9153108 (Version 1)
Quarter: 2013Q1

REPORT INFORMATION
  Report Type: Report from Study
  Country: US (occurrence: US)
  Receive Date: 20130311
  Receipt Date: 20130311
  Transmission Date: 20140127
  Serious: No
  Sender: FDA-Public Use
  Company Number: US-009507513-1303USA003501

PATIENT
  Age: 54 None
  Sex: Female

DRUGS (4)
  1. BOCEPREVIR [Suspect]
     Indication: CHRONIC HEPATITIS C
     Dosage: 3 TABLETS, TID
     Dates: start: 20111125
  2. BOCEPREVIR [Suspect]
     Dosage: 4 TABLETS, TID
  3. RIBAVIRIN [Suspect]
     Indication: CHRONIC HEPATITIS C
     Dosage: 1000 MG, QD
     Dates: start: 20111125
  4. PEGINTERFERON ALFA-2A [Suspect]
     Indication: CHRONIC HEPATITIS C
     Dosage: 180 MICROGRAM, QW
     Dates: start: 20111125

REACTIONS (13)
  - Asthenia [Unknown]
  - Vision blurred [Unknown]
  - Rash pruritic [Unknown]
  - Rash pruritic [Unknown]
  - Rash pruritic [Unknown]
  - Cataract [Unknown]
  - Epistaxis [Unknown]
  - Haemoglobin decreased [Unknown]
  - Blister [Unknown]
  - Fatigue [Unknown]
  - Bronchitis [Unknown]
  - Depression [Unknown]
  - Chest pain [Unknown]
